FAERS Safety Report 4306618-9 (Version None)
Quarter: 2004Q1

REPORT INFORMATION
  Report Type: 
  Country: None (occurrence: None)
  Receive Date: 20040225
  Receipt Date: 20031006
  Transmission Date: 20041129
  Serious: No
  Sender: FDA-Public Use
  Company Number: US-BRISTOL-MYERS SQUIBB COMPANY-12422895

PATIENT
  Age: 74 Year
  Sex: Male
  Weight: 68 kg

DRUGS (1)
  1. EXCEDRIN ES TABS [Suspect]
     Dosage: DOSE:  1 TO 2 DOSAGE FORM; ON 5 OR 6 OCCASIONS.
     Route: 048
     Dates: start: 20030916

REACTIONS (1)
  - ABDOMINAL PAIN [None]
